FAERS Safety Report 9537332 (Version 2)
Quarter: 2013Q4

REPORT INFORMATION
  Report Type: Report from Study
  Country: US (occurrence: US)
  Receive Date: 20130919
  Receipt Date: 20131003
  Transmission Date: 20140711
  Serious: Yes (Hospitalization, Other)
  Sender: FDA-Public Use
  Company Number: US-US-EMD SERONO, INC.-7237578

PATIENT
  Age: 49 Year
  Sex: Female
  Weight: 54 kg

DRUGS (1)
  1. REBIF [Suspect]
     Indication: MULTIPLE SCLEROSIS
     Route: 058
     Dates: start: 20060914

REACTIONS (6)
  - Syncope [Recovering/Resolving]
  - Road traffic accident [Unknown]
  - Ovarian cyst [Not Recovered/Not Resolved]
  - Disorientation [Unknown]
  - Dehydration [Unknown]
  - Asthenia [Not Recovered/Not Resolved]
